FAERS Safety Report 4768389-1 (Version None)
Quarter: 2005Q3

REPORT INFORMATION
  Report Type: 
  Country: None (occurrence: None)
  Receive Date: 20050906
  Receipt Date: 20050620
  Transmission Date: 20060218
  Serious: No
  Sender: FDA-Public Use
  Company Number: 2004-BP-11501BP

PATIENT
  Age: 47 Year
  Sex: Female

DRUGS (6)
  1. SPIRIVA [Suspect]
     Indication: CHRONIC OBSTRUCTIVE PULMONARY DISEASE
     Dosage: 18 MCG (18 MCG, QD), IH
     Route: 055
     Dates: start: 20041001
  2. SPIRIVA [Suspect]
  3. ALBUTEROL [Concomitant]
  4. ADVAIR DISKUS 100/50 [Concomitant]
  5. POTASSIUM SUPPLEMENT [Concomitant]
  6. MAGNESIUM SUPPLEMENT [Concomitant]

REACTIONS (1)
  - AGEUSIA [None]
